FAERS Safety Report 8309486-3 (Version None)
Quarter: 2012Q2

REPORT INFORMATION
  Report Type: 
  Country: None (occurrence: None)
  Receive Date: 20120425
  Receipt Date: 20120419
  Transmission Date: 20120825
  Serious: No
  Sender: FDA-Public Use
  Company Number: US-PFIZER INC-2009171276

PATIENT
  Sex: Female
  Weight: 58.957 kg

DRUGS (10)
  1. LIPITOR [Suspect]
     Indication: BLOOD CHOLESTEROL INCREASED
     Dosage: 20 MG, 1X/DAY
     Dates: start: 20080101
  2. COSOPT [Concomitant]
     Dosage: UNK
     Route: 047
  3. CYCLOSPORINE [Concomitant]
     Dosage: UNK
     Route: 047
  4. XALATAN [Suspect]
     Indication: GLAUCOMA
     Dosage: UNK
  5. CELEXA [Concomitant]
     Indication: ANXIETY
     Dosage: UNK
  6. LYRICA [Suspect]
     Indication: HYPOAESTHESIA
     Dosage: 25 MG, 2X/DAY
     Route: 048
  7. LYRICA [Suspect]
     Dosage: 25 MG, 1X/DAY
  8. LYRICA [Suspect]
     Indication: NEUROPATHY PERIPHERAL
  9. TENORMIN [Concomitant]
     Indication: HYPERTENSION
     Dosage: UNK
  10. LYRICA [Suspect]
     Dosage: 75 MG, 3X/DAY
     Route: 048

REACTIONS (2)
  - HERPES ZOSTER [None]
  - BLOOD CHOLESTEROL INCREASED [None]
